FAERS Safety Report 15686765 (Version 1)
Quarter: 2018Q4

REPORT INFORMATION
  Report Type: Report from Study
  Country: US (occurrence: US)
  Receive Date: 20181204
  Receipt Date: 20181204
  Transmission Date: 20190205
  Serious: Yes (Hospitalization)
  Sender: FDA-Public Use
  Company Number: US-ACTELION-A-US2018-182501

PATIENT
  Age: 74 Year
  Sex: Female

DRUGS (4)
  1. ADCIRCA [Concomitant]
     Active Substance: TADALAFIL
  2. UPTRAVI [Suspect]
     Active Substance: SELEXIPAG
     Indication: PULMONARY ARTERIAL HYPERTENSION
     Dosage: 800 MCG, BID
     Route: 048
     Dates: start: 20161208
  3. OXYGEN. [Concomitant]
     Active Substance: OXYGEN
  4. LETAIRIS [Concomitant]
     Active Substance: AMBRISENTAN

REACTIONS (5)
  - Metabolic encephalopathy [Unknown]
  - Decreased appetite [Not Recovered/Not Resolved]
  - Gastrointestinal haemorrhage [Unknown]
  - Oxygen consumption increased [Unknown]
  - Gastroenteritis viral [Recovering/Resolving]

NARRATIVE: CASE EVENT DATE: 20181116
